FAERS Safety Report 6885347-1 (Version None)
Quarter: 2010Q3

REPORT INFORMATION
  Report Type: 
  Country: None (occurrence: None)
  Receive Date: 20100727
  Receipt Date: 20100712
  Transmission Date: 20110219
  Serious: Yes (Hospitalization)
  Sender: FDA-Public Use
  Company Number: 1-18178183

PATIENT
  Sex: Female
  Weight: 104.3273 kg

DRUGS (6)
  1. QUININE (MFR QUALITEST) [Suspect]
     Indication: MUSCLE SPASMS
     Dosage: PRN, ORAL
     Route: 048
     Dates: start: 20050301, end: 20070802
  2. ZYTEC (CETIRIZINE HYDROCHLORIDE) [Concomitant]
  3. LASIX [Concomitant]
  4. KLOR-CON [Concomitant]
  5. LISINOPRIL [Concomitant]
  6. MULTI-VITAMIN [Concomitant]

REACTIONS (7)
  - ANXIETY [None]
  - EMOTIONAL DISORDER [None]
  - FEAR [None]
  - IDIOPATHIC THROMBOCYTOPENIC PURPURA [None]
  - ILL-DEFINED DISORDER [None]
  - INJURY [None]
  - PAIN [None]
